FAERS Safety Report 9171941 (Version 2)
Quarter: 2013Q3

REPORT INFORMATION
  Report Type: Report from Study
  Country: FR (occurrence: FR)
  Receive Date: 20130319
  Receipt Date: 20130801
  Transmission Date: 20140515
  Serious: Yes (Hospitalization, Disabling, Other)
  Sender: FDA-Public Use
  Company Number: FR-009507513-1103USA03707

PATIENT
  Age: 80 Year
  Sex: Male
  Weight: 73 kg

DRUGS (14)
  1. PLACEBO [Suspect]
     Indication: ACUTE CORONARY SYNDROME
     Dosage: UNK
     Route: 048
     Dates: start: 20060928, end: 20130129
  2. SIMVASTATIN [Suspect]
     Indication: ACUTE CORONARY SYNDROME
     Dosage: UNK
     Route: 048
     Dates: start: 20060928
  3. FUROSEMIDE [Concomitant]
     Dosage: UNK UNK, QD
     Route: 048
     Dates: start: 20090901
  4. AMLODIPINE [Concomitant]
     Dosage: UNK UNK, QD
     Route: 048
     Dates: start: 20070901
  5. OMEPRAZOLE [Concomitant]
     Dosage: 20 MG, QD
     Route: 048
     Dates: start: 20110125
  6. BISOPROLOL [Concomitant]
     Dosage: UNK UNK, QD
     Route: 048
     Dates: start: 20081201
  7. FLUINDIONE [Concomitant]
     Dosage: UNK UNK, QD
     Route: 048
     Dates: start: 20080901
  8. HYDROCHLOROTHIAZIDE [Concomitant]
     Dosage: UNK UNK, QD
     Route: 048
     Dates: start: 20080125
  9. REPAGLINIDE [Concomitant]
     Dosage: 1 MG, QD
     Route: 048
     Dates: start: 20110101
  10. LISINOPRIL [Concomitant]
     Dosage: UNK UNK, QD
     Route: 048
     Dates: start: 20080125
  11. ALFUZOSIN HYDROCHLORIDE [Concomitant]
     Dosage: 10 MG, QD
     Route: 048
     Dates: start: 20080519
  12. CODEINE [Concomitant]
     Dosage: UNK UNK, QD
     Route: 048
  13. ACETAMINOPHEN [Concomitant]
     Dosage: UNK UNK, QD
     Route: 048
  14. DARBEPOETIN ALFA [Concomitant]
     Dosage: UNK UNK, QD
     Route: 058

REACTIONS (2)
  - Renal failure [Recovered/Resolved]
  - Renal failure chronic [Unknown]
